FAERS Safety Report 5466079-3 (Version None)
Quarter: 2007Q3

REPORT INFORMATION
  Report Type: 
  Country: None (occurrence: None)
  Receive Date: 20070924
  Receipt Date: 20070911
  Transmission Date: 20080115
  Serious: Yes (Hospitalization)
  Sender: FDA-Public Use
  Company Number: US-ELI_LILLY_AND_COMPANY-US200709002097

PATIENT
  Age: 65 Year
  Sex: Female

DRUGS (2)
  1. CYMBALTA [Suspect]
     Dosage: 240 MG, DAILY (1/D)
     Route: 048
  2. LAMICTAL [Concomitant]

REACTIONS (2)
  - HOSPITALISATION [None]
  - OVERDOSE [None]
